FAERS Safety Report 10867675 (Version 1)
Quarter: 2015Q1

REPORT INFORMATION
  Report Type: Spontaneous
  Country: US (occurrence: US)
  Receive Date: 20150225
  Receipt Date: 20150225
  Transmission Date: 20150721
  Serious: No
  Sender: FDA-Public Use
  Company Number: US-ASTRAZENECA-2015SE14654

PATIENT
  Age: 66 Year
  Sex: Male
  Weight: 66.2 kg

DRUGS (4)
  1. MELOXICAM. [Concomitant]
     Active Substance: MELOXICAM
     Indication: SPONDYLITIS
     Route: 048
     Dates: start: 201404
  2. SYMBICORT [Suspect]
     Active Substance: BUDESONIDE\FORMOTEROL FUMARATE DIHYDRATE
     Indication: BRONCHITIS CHRONIC
     Dosage: 160 OVER 4.5, 1 PUFF ONCE DAILY
     Route: 055
     Dates: start: 2013
  3. SYMBICORT [Suspect]
     Active Substance: BUDESONIDE\FORMOTEROL FUMARATE DIHYDRATE
     Indication: BRONCHITIS CHRONIC
     Dosage: 160 OVER 4.5, 2 PUFFS DAILY
     Route: 055
     Dates: start: 2013
  4. PROAIR HFA [Concomitant]
     Active Substance: ALBUTEROL SULFATE
     Indication: DYSPNOEA
     Dosage: TOOK PROAIR 1 PUFF SOMETIMES AND 2 PUFFS OTHER TIMES DEPENDING ON HOW HE FELT
     Route: 055
     Dates: start: 2005

REACTIONS (9)
  - Blood cholesterol increased [Unknown]
  - Hypertension [Unknown]
  - Asthenia [Unknown]
  - Headache [Unknown]
  - Asthma [Unknown]
  - Dyspnoea exertional [Unknown]
  - Blood pressure inadequately controlled [Unknown]
  - Sinus disorder [Unknown]
  - Intentional product misuse [Unknown]

NARRATIVE: CASE EVENT DATE: 2013
